FAERS Safety Report 20078928 (Version 1)
Quarter: 2021Q4

REPORT INFORMATION
  Report Type: Report from Study
  Country: US (occurrence: US)
  Receive Date: 20211117
  Receipt Date: 20211117
  Transmission Date: 20220303
  Serious: Yes (Other)
  Sender: FDA-Public Use
  Company Number: US-ABBVIE-21K-163-4162827-00

PATIENT
  Sex: Female

DRUGS (3)
  1. HUMIRA [Suspect]
     Active Substance: ADALIMUMAB
     Indication: Crohn^s disease
     Dosage: LOADING DOSE
     Route: 058
     Dates: start: 2019, end: 2019
  2. HUMIRA [Suspect]
     Active Substance: ADALIMUMAB
     Route: 058
     Dates: end: 2020
  3. HUMIRA [Suspect]
     Active Substance: ADALIMUMAB
     Dosage: LOADING DOSE
     Route: 058
     Dates: start: 2021, end: 2021

REACTIONS (4)
  - Intestinal obstruction [Unknown]
  - Crohn^s disease [Not Recovered/Not Resolved]
  - COVID-19 [Recovered/Resolved]
  - Device issue [Unknown]

NARRATIVE: CASE EVENT DATE: 20210101
